FAERS Safety Report 7031916-8 (Version None)
Quarter: 2010Q4

REPORT INFORMATION
  Report Type: 
  Country: None (occurrence: None)
  Receive Date: 20101007
  Receipt Date: 20100927
  Transmission Date: 20110411
  Serious: No
  Sender: FDA-Public Use
  Company Number: 2009BI039571

PATIENT
  Sex: Female
  Weight: 90 kg

DRUGS (4)
  1. TYSABRI [Suspect]
     Indication: MULTIPLE SCLEROSIS
     Route: 042
     Dates: start: 20090821
  2. TYSABRI [Suspect]
     Route: 042
  3. CLARITIN [Concomitant]
     Indication: PREMEDICATION
  4. UNKNOWN MEDICATION [Concomitant]
     Indication: PREMEDICATION

REACTIONS (9)
  - DYSPNOEA [None]
  - HYPERSENSITIVITY [None]
  - MUSCLE SPASMS [None]
  - NAUSEA [None]
  - PAIN IN EXTREMITY [None]
  - PARAESTHESIA [None]
  - RASH GENERALISED [None]
  - SERUM SICKNESS [None]
  - THROAT TIGHTNESS [None]
